FAERS Safety Report 5935572-9 (Version None)
Quarter: 2008Q4

REPORT INFORMATION
  Report Type: 
  Country: None (occurrence: None)
  Receive Date: 20081030
  Receipt Date: 20081024
  Transmission Date: 20090506
  Serious: Yes (Life-Threatening, Hospitalization, Congenital Anomaly, Other)
  Sender: FDA-Public Use
  Company Number: A0753999B

PATIENT
  Sex: Male

DRUGS (14)
  1. COMBIVIR [Suspect]
     Indication: HIV INFECTION
     Dates: start: 20080225
  2. ZIDOVUDINE [Suspect]
     Indication: HIV INFECTION
     Dates: start: 20080805, end: 20080805
  3. RITONAVIR [Suspect]
     Indication: HIV INFECTION
     Dosage: 100MG PER DAY
     Dates: start: 20080225
  4. REYATAZ [Suspect]
     Indication: HIV INFECTION
     Dosage: 300MG PER DAY
     Dates: start: 20080225
  5. OXYTOCIN [Concomitant]
     Dates: start: 20080825
  6. DEMEROL [Concomitant]
     Dates: start: 20080825, end: 20080825
  7. DIFLUCAN [Concomitant]
  8. FERROUS SULFATE [Concomitant]
  9. KEFLEX [Concomitant]
  10. PHENERGAN HCL [Concomitant]
  11. VITAMIN TAB [Concomitant]
  12. PEPCID [Concomitant]
  13. MACRODANTIN [Concomitant]
  14. LACTATED RINGER'S [Concomitant]

REACTIONS (14)
  - ANAEMIA NEONATAL [None]
  - APGAR SCORE LOW [None]
  - CARDIAC MURMUR [None]
  - CONGENITAL HEPATOMEGALY [None]
  - HYPERBILIRUBINAEMIA NEONATAL [None]
  - MECHANICAL VENTILATION [None]
  - PATENT DUCTUS ARTERIOSUS [None]
  - PORTAL VEIN THROMBOSIS [None]
  - PULMONARY HYPERTENSION [None]
  - RESPIRATORY DEPTH DECREASED [None]
  - STAPHYLOCOCCAL BACTERAEMIA [None]
  - THALASSAEMIA ALPHA [None]
  - THROMBOCYTOPENIA NEONATAL [None]
  - VENTRICULAR SEPTAL DEFECT [None]
